FAERS Safety Report 5110459-2 (Version None)
Quarter: 2006Q3

REPORT INFORMATION
  Report Type: 
  Country: None (occurrence: None)
  Receive Date: 20060915
  Receipt Date: 20060908
  Transmission Date: 20061208
  Serious: Yes (Life-Threatening)
  Sender: FDA-Public Use
  Company Number: 2006-147315-NL

PATIENT
  Age: 50 Year
  Sex: Male

DRUGS (5)
  1. MIRTAZAPINE [Suspect]
     Dosage: 45 MG, ORAL
     Route: 048
  2. LEVOMEPROMAZINE [Suspect]
     Dosage: 100 MG, ORAL
     Route: 048
  3. OLANZAPINE [Suspect]
     Indication: SCHIZOPHRENIA
     Dosage: 10 MG, ORAL
     Route: 048
     Dates: end: 20060815
  4. ALIMEMAZINE TARTRATE [Suspect]
     Dosage: 5 DF, ORAL
     Route: 048
  5. BROMAZEPAM [Suspect]
     Dosage: 1.5 DF, ORAL
     Route: 048

REACTIONS (5)
  - BLOOD PRESSURE INCREASED [None]
  - DIABETIC KETOACIDOSIS [None]
  - HEART RATE INCREASED [None]
  - HEPATOMEGALY [None]
  - SOPOR [None]
